FAERS Safety Report 9361443 (Version 2)
Quarter: 2013Q2

REPORT INFORMATION
  Report Type: Spontaneous
  Country: JP (occurrence: JP)
  Receive Date: 20130621
  Receipt Date: 20130627
  Transmission Date: 20140414
  Serious: Yes (Death)
  Sender: FDA-Public Use
  Company Number: JP-PFIZER INC-2013186110

PATIENT
  Age: 74 Year
  Sex: Female

DRUGS (6)
  1. SLONNON [Suspect]
     Indication: ANTICOAGULANT THERAPY
     Dosage: 0.3 MCG/KG/MIN
     Route: 041
  2. SLONNON [Suspect]
     Dosage: 0.5 MCG/KG/MIN, 2.0 MG ADDED AS NEEDED
     Route: 041
  3. SLONNON [Suspect]
     Dosage: 10 MCG/KG/MIN, 50 MCG/KG X3 AND 100 MCG/KG X2 WERE ADDED, PROGRESSIVE REDUCTION IN ACT WAS OBSERV
     Route: 041
  4. PROPOFOL [Concomitant]
     Indication: INDUCTION OF ANAESTHESIA
     Dosage: UNK
     Route: 065
  5. FENTANYL CITRATE [Concomitant]
     Indication: INDUCTION OF ANAESTHESIA
     Dosage: UNK
     Route: 065
  6. VECURONIUM BROMIDE [Concomitant]
     Indication: INDUCTION OF ANAESTHESIA
     Dosage: UNK
     Route: 065

REACTIONS (1)
  - Haemorrhage [Fatal]
